FAERS Safety Report 4471340-5 (Version None)
Quarter: 2004Q4

REPORT INFORMATION
  Report Type: 
  Country: None (occurrence: None)
  Receive Date: 20041006
  Receipt Date: 20040929
  Transmission Date: 20050328
  Serious: Yes (Death, Hospitalization)
  Sender: FDA-Public Use
  Company Number: 8937

PATIENT
  Age: 4 Year
  Sex: Female

DRUGS (12)
  1. METHOTREXATE [Suspect]
     Indication: JUVENILE ARTHRITIS
     Dosage: 10 MG WEEKLY SC
     Route: 058
     Dates: start: 20020101, end: 20040804
  2. AUGMENTIN '125' [Suspect]
     Dosage: 7 ML TID PO
     Route: 048
     Dates: start: 20040707, end: 20040727
  3. REMICADE [Suspect]
     Indication: JUVENILE ARTHRITIS
     Dosage: 80 MG MONTHLY IV
     Route: 042
     Dates: start: 20030512, end: 20040614
  4. SANDIMMUNE [Suspect]
     Indication: JUVENILE ARTHRITIS
     Dosage: 120 MG DAILY PO
     Route: 048
     Dates: start: 20020101, end: 20040804
  5. SOLU-MEDROL [Suspect]
     Indication: JUVENILE ARTHRITIS
     Dosage: 0.6 G/M2 FOTRTNIGHTLY IV
     Route: 042
     Dates: start: 20040325, end: 20040804
  6. THALOMID [Suspect]
     Indication: JUVENILE ARTHRITIS
     Dosage: 50 MG DAILY PO
     Route: 048
     Dates: start: 20040623, end: 20040804
  7. LEUCOVORIN CALCIUM [Concomitant]
  8. CALCIMAGON [Concomitant]
  9. MALTOFER [Concomitant]
  10. NITROFURANTOIN [Concomitant]
  11. PROXEN [Concomitant]
  12. NORVASC [Concomitant]

REACTIONS (12)
  - ARTHRALGIA [None]
  - CARDIAC ARREST [None]
  - ESCHERICHIA URINARY TRACT INFECTION [None]
  - GASTROENTERITIS [None]
  - HAEMOGLOBIN DECREASED [None]
  - JOINT SWELLING [None]
  - PLATELET COUNT INCREASED [None]
  - PYREXIA [None]
  - SEPSIS [None]
  - SUDDEN DEATH [None]
  - URINARY TRACT INFECTION ENTEROCOCCAL [None]
  - WHITE BLOOD CELL COUNT DECREASED [None]
